FAERS Safety Report 24142744 (Version 3)
Quarter: 2024Q3

REPORT INFORMATION
  Report Type: Spontaneous
  Country: RS (occurrence: None)
  Receive Date: 20240726
  Receipt Date: 20240827
  Transmission Date: 20241016
  Serious: Yes (Hospitalization)
  Sender: ASTRAZENECA
  Company Number: 2024A165550

PATIENT
  Sex: Female

DRUGS (17)
  1. FASENRA [Suspect]
     Active Substance: BENRALIZUMAB
     Indication: Asthma
     Dosage: 30.0MG UNKNOWN
     Route: 058
  2. DEXAMETHASONE [Concomitant]
     Active Substance: DEXAMETHASONE
  3. LACTIBIANE TOLERANCE [Concomitant]
  4. SPIRIVA [Concomitant]
     Active Substance: TIOTROPIUM BROMIDE MONOHYDRATE
  5. XYZAL [Concomitant]
     Active Substance: LEVOCETIRIZINE DIHYDROCHLORIDE
  6. VERAPAMIL HYDROCHLORIDE/DIGOXIN/TRIMETOZINE [Concomitant]
  7. CALCIUM CARBONATE\SODIUM ALGINATE\SODIUM BICARBONATE\SODIUM CARBONATE [Concomitant]
     Active Substance: CALCIUM CARBONATE\SODIUM ALGINATE\SODIUM BICARBONATE\SODIUM CARBONATE
  8. GELOREVOICE [Concomitant]
  9. KANAZOL [Concomitant]
  10. FOSTER [Concomitant]
     Active Substance: BECLOMETHASONE\FORMOTEROL
  11. SINGULAIR [Concomitant]
     Active Substance: MONTELUKAST SODIUM
  12. VIGANTOL [Concomitant]
  13. TORSEMIDE [Concomitant]
     Active Substance: TORSEMIDE
  14. GASTROPERIDON [Concomitant]
  15. GASTROPRAZOL [Concomitant]
  16. MOMENSA SPRAY [Concomitant]
  17. YANIDA [Concomitant]

REACTIONS (3)
  - Systemic candida [Recovering/Resolving]
  - Bronchitis [Recovering/Resolving]
  - Drug ineffective [Unknown]
